FAERS Safety Report 8957753 (Version 2)
Quarter: 2013Q2

REPORT INFORMATION
  Report Type: Report from Study
  Country: FR (occurrence: FR)
  Receive Date: 20121211
  Receipt Date: 20130418
  Transmission Date: 20140414
  Serious: Yes (Other)
  Sender: FDA-Public Use
  Company Number: FR-ROCHE-1166937

PATIENT
  Age: 58 Year
  Sex: Female

DRUGS (8)
  1. PEGASYS [Suspect]
     Indication: HEPATITIS C
     Route: 058
     Dates: start: 20121018, end: 20121026
  2. COPEGUS [Suspect]
     Indication: HEPATITIS C
     Route: 048
     Dates: start: 20121018, end: 20121026
  3. INCIVO [Suspect]
     Indication: HEPATITIS C
     Route: 048
     Dates: start: 20121018, end: 20121026
  4. SEROPLEX [Concomitant]
     Route: 048
  5. PROPANOLOLI HYDROCHLORIDUM [Concomitant]
  6. TRAMADOL [Concomitant]
  7. LAMALINE [Concomitant]
  8. SPIRONOLACTON [Concomitant]

REACTIONS (1)
  - Renal failure acute [Recovering/Resolving]
